FAERS Safety Report 16987308 (Version 1)
Quarter: 2019Q4

REPORT INFORMATION
  Report Type: Spontaneous
  Country: GB (occurrence: GB)
  Receive Date: 20191102
  Receipt Date: 20191102
  Transmission Date: 20200122
  Serious: Yes (Hospitalization)
  Sender: FDA-Public Use
  Company Number: GB-ACCORD-159600

PATIENT
  Age: 77 Year
  Sex: Female
  Weight: 50.7 kg

DRUGS (22)
  1. SIMVASTATIN. [Suspect]
     Active Substance: SIMVASTATIN
     Indication: CARDIOVASCULAR EVENT PROPHYLAXIS
     Dosage: AT NIGHT
     Route: 048
     Dates: start: 20180905, end: 20191013
  2. PREDNISOLONE. [Interacting]
     Active Substance: PREDNISOLONE
     Indication: CHRONIC OBSTRUCTIVE PULMONARY DISEASE
     Dosage: IN THE MORNING
     Route: 048
     Dates: start: 20190912, end: 20191010
  3. DUORESP SPIROMAX [Concomitant]
     Active Substance: BUDESONIDE\FORMOTEROL
     Dosage: 320/9
     Route: 055
  4. CITALOPRAM [Concomitant]
     Active Substance: CITALOPRAM HYDROBROMIDE
  5. PROCHLORPERAZINE. [Concomitant]
     Active Substance: PROCHLORPERAZINE
     Dosage: THREE TIMES DAILY
  6. FORTISIP [Concomitant]
     Active Substance: CARBOHYDRATES\FATTY ACIDS\MINERALS\PROTEIN\VITAMINS
     Dosage: ACUTE, MULTIPLE ISSUES
  7. IBUPROFEN. [Concomitant]
     Active Substance: IBUPROFEN
     Dosage: UP TO 3-4 TIMES/DAY
  8. CHLORPHENAMINE/CHLORPHENAMINE MALEATE/CHLORPHENAMINE RESINATE/CHLORPHENAMINE TANNATE [Concomitant]
     Dosage: 4-6 HOURLY
  9. OMEPRAZOLE. [Concomitant]
     Active Substance: OMEPRAZOLE
  10. RIVAROXABAN [Concomitant]
     Active Substance: RIVAROXABAN
  11. VENTOLIN [Concomitant]
     Active Substance: ALBUTEROL SULFATE
  12. FLUCONAZOLE. [Interacting]
     Active Substance: FLUCONAZOLE
     Indication: ORAL CANDIDIASIS
     Route: 048
     Dates: start: 20191007, end: 20191008
  13. CARBOCISTEINE [Concomitant]
     Active Substance: CARBOCYSTEINE
  14. ACIDEX [Concomitant]
     Active Substance: CALCIUM CARBONATE\SODIUM ALGINATE\SODIUM BICARBONATE
     Dosage: 10-20ML AFTER MEALS AND AT NIGHT
  15. MEBEVERINE [Concomitant]
     Active Substance: MEBEVERINE
     Dosage: THREE TIMES DAILY
  16. AMITRIPTYLINE [Concomitant]
     Active Substance: AMITRIPTYLINE
     Dosage: AT NIGHT. ACUTE
     Dates: start: 20190917
  17. TRAMADOL. [Concomitant]
     Active Substance: TRAMADOL
     Dosage: 50 TO 100MG FOUR TIMES DAILY
  18. AZITHROMYCIN ANHYDROUS. [Concomitant]
     Active Substance: AZITHROMYCIN ANHYDROUS
     Dosage: MONDAY, WEDNESDAY, FRIDAY. 200MG/5ML
  19. MACROGOL/MACROGOL STEARATE [Concomitant]
  20. CIPROFLOXACIN/CIPROFLOXACIN HYDROCHLORIDE/CIPROFLOXACIN LACTATE [Interacting]
     Active Substance: CIPROFLOXACIN
     Indication: CHRONIC OBSTRUCTIVE PULMONARY DISEASE
     Route: 048
     Dates: start: 20190912, end: 20191010
  21. CODEINE [Concomitant]
     Active Substance: CODEINE
     Dosage: 30-60MG FOUR TIMES DAILY.ACUTE
     Dates: start: 20190708
  22. SPIRIVA [Concomitant]
     Active Substance: TIOTROPIUM BROMIDE MONOHYDRATE
     Route: 055

REACTIONS (7)
  - Abdominal pain [Recovering/Resolving]
  - Medication error [Unknown]
  - Drug interaction [Unknown]
  - Pancreatitis acute [Recovering/Resolving]
  - Diarrhoea [Unknown]
  - Chest pain [Recovering/Resolving]
  - Dyspnoea [Not Recovered/Not Resolved]

NARRATIVE: CASE EVENT DATE: 20191013
